FAERS Safety Report 14281327 (Version 2)
Quarter: 2018Q1

REPORT INFORMATION
  Report Type: Other
  Country: CA (occurrence: CA)
  Receive Date: 20171213
  Receipt Date: 20180110
  Transmission Date: 20180508
  Serious: Yes (Other)
  Sender: FDA-Public Use
  Company Number: CA-APOTEX-2017AP022320

PATIENT
  Age: 41 Year
  Sex: Female

DRUGS (8)
  1. TAPENTADOL [Concomitant]
     Active Substance: TAPENTADOL
     Indication: NEURALGIA
     Dosage: UNK
     Route: 065
  2. BUPROPION. [Concomitant]
     Active Substance: BUPROPION
     Indication: NEURALGIA
     Dosage: UNK
     Route: 065
  3. NAPROXEN. [Concomitant]
     Active Substance: NAPROXEN
     Indication: NEURALGIA
     Dosage: UNK
     Route: 065
  4. ACETAMINOPHEN. [Concomitant]
     Active Substance: ACETAMINOPHEN
     Indication: NEURALGIA
     Dosage: UNK
     Route: 065
  5. CARBAMAZEPINE. [Suspect]
     Active Substance: CARBAMAZEPINE
     Indication: NEURALGIA
     Dosage: UNK
     Route: 065
  6. MORPHINE [Concomitant]
     Active Substance: MORPHINE
     Indication: NEURALGIA
     Dosage: UNK
     Route: 065
  7. HYDROMORPHONE [Concomitant]
     Active Substance: HYDROMORPHONE
     Indication: NEURALGIA
     Dosage: UNK
     Route: 065
  8. METHADONE [Concomitant]
     Active Substance: METHADONE HYDROCHLORIDE
     Indication: NEURALGIA
     Dosage: UNK
     Route: 065

REACTIONS (3)
  - Drug intolerance [Unknown]
  - Therapy non-responder [Unknown]
  - Stevens-Johnson syndrome [Unknown]
